FAERS Safety Report 17811186 (Version 1)
Quarter: 2020Q2

REPORT INFORMATION
  Report Type: Spontaneous
  Country: US (occurrence: US)
  Receive Date: 20200521
  Receipt Date: 20200521
  Transmission Date: 20200714
  Serious: Yes (Death)
  Sender: FDA-Public Use
  Company Number: US-TEVA-2020-US-1239992

PATIENT
  Sex: Female
  Weight: 58 kg

DRUGS (2)
  1. AUSTEDO [Suspect]
     Active Substance: DEUTETRABENAZINE
     Indication: HUNTINGTON^S DISEASE
     Dosage: 27 MG IN THE MORNING AND IN THE EVENING
     Route: 048
     Dates: start: 2018
  2. MELATONIN [Concomitant]
     Active Substance: MELATONIN

REACTIONS (1)
  - Death [Fatal]
